FAERS Safety Report 21147777 (Version 1)
Quarter: 2022Q3

REPORT INFORMATION
  Report Type: Spontaneous
  Country: FR (occurrence: FR)
  Receive Date: 20220729
  Receipt Date: 20220729
  Transmission Date: 20221027
  Serious: Yes (Hospitalization)
  Sender: FDA-Public Use
  Company Number: None

PATIENT
  Age: 20 Year
  Sex: Female

DRUGS (3)
  1. LYRICA [Suspect]
     Active Substance: PREGABALIN
     Dosage: 300 MG, 3X/DAY
     Route: 065
     Dates: start: 2022
  2. COCAINE [Suspect]
     Active Substance: COCAINE
     Dosage: 1 G, DAILY
     Route: 045
     Dates: start: 202205, end: 202205
  3. COCAINE [Suspect]
     Active Substance: COCAINE
     Dosage: 2 G, DAILY
     Route: 045
     Dates: start: 202205

REACTIONS (4)
  - Withdrawal syndrome [Unknown]
  - Intentional product misuse [Unknown]
  - Overdose [Unknown]
  - Drug abuse [Unknown]

NARRATIVE: CASE EVENT DATE: 20220101
